FAERS Safety Report 8849871 (Version 2)
Quarter: 2012Q4

REPORT INFORMATION
  Report Type: 
  Country: JP (occurrence: JP)
  Receive Date: 20121019
  Receipt Date: 20121116
  Transmission Date: 20130627
  Serious: Yes (Life-Threatening, Other)
  Sender: FDA-Public Use
  Company Number: JP-ROCHE-1147094

PATIENT
  Age: 74 Year
  Sex: Female
  Weight: 42 kg

DRUGS (2)
  1. ROCEPHIN [Suspect]
     Indication: GASTROENTERITIS BACTERIAL
     Route: 041
     Dates: start: 20120423, end: 20120423
  2. ROCEPHIN [Suspect]
     Indication: DIVERTICULITIS
     Route: 041
     Dates: start: 20121015, end: 20121015

REACTIONS (7)
  - Shock [Recovered/Resolved]
  - Anaphylactic shock [Recovered/Resolved]
  - Depressed level of consciousness [Recovering/Resolving]
  - Blood pressure decreased [Recovering/Resolving]
  - Respiratory depression [Unknown]
  - Feeling abnormal [Unknown]
  - Hyperhidrosis [Unknown]
